FAERS Safety Report 25645854 (Version 2)
Quarter: 2025Q3

REPORT INFORMATION
  Report Type: Report from Study
  Country: US (occurrence: US)
  Receive Date: 20250805
  Receipt Date: 20250821
  Transmission Date: 20251020
  Serious: Yes (Other)
  Sender: BAUSCH AND LOMB
  Company Number: US-BAUSCHBL-2025BNL013445

PATIENT
  Sex: Male

DRUGS (1)
  1. MIEBO [Suspect]
     Active Substance: PERFLUOROHEXYLOCTANE
     Indication: Product used for unknown indication
     Route: 047

REACTIONS (9)
  - Macular degeneration [Unknown]
  - Dry eye [Unknown]
  - Retinopexy [Unknown]
  - Patient dissatisfaction with treatment [Unknown]
  - Product delivery mechanism issue [Unknown]
  - Product complaint [Unknown]
  - Wrong technique in product usage process [Unknown]
  - Extra dose administered [Unknown]
  - Intentional product use issue [Unknown]
